FAERS Safety Report 10946289 (Version 2)
Quarter: 2015Q2

REPORT INFORMATION
  Report Type: Spontaneous
  Country: GR (occurrence: GR)
  Receive Date: 20150323
  Receipt Date: 20150409
  Transmission Date: 20150821
  Serious: Yes (Other)
  Sender: FDA-Public Use
  Company Number: GR-GLAXOSMITHKLINE-GR2015GSK035795

PATIENT
  Age: 45 Year
  Sex: Female

DRUGS (1)
  1. REVOLADE [Suspect]
     Active Substance: ELTROMBOPAG
     Indication: IMMUNE THROMBOCYTOPENIC PURPURA
     Dosage: 75 MG, UNK

REACTIONS (6)
  - Oropharyngeal pain [Unknown]
  - Disease recurrence [Unknown]
  - Viral infection [Unknown]
  - Rhinitis [Unknown]
  - Off label use [Unknown]
  - Platelet count decreased [Unknown]
